FAERS Safety Report 4620589-7 (Version None)
Quarter: 2005Q1

REPORT INFORMATION
  Report Type: 
  Country: None (occurrence: None)
  Receive Date: 20050324
  Receipt Date: 20050314
  Transmission Date: 20050727
  Serious: Yes (Death)
  Sender: FDA-Public Use
  Company Number: 26361

PATIENT
  Sex: Female

DRUGS (1)
  1. APOCARD (ORAL) (FLECAINIDE ACETATE) [Suspect]

REACTIONS (1)
  - CARDIOGENIC SHOCK [None]
